FAERS Safety Report 8317002-5 (Version None)
Quarter: 2012Q2

REPORT INFORMATION
  Report Type: 
  Country: None (occurrence: None)
  Receive Date: 20120425
  Receipt Date: 20120413
  Transmission Date: 20120825
  Serious: Yes (Hospitalization, Other)
  Sender: FDA-Public Use
  Company Number: AUR-APL-2012-01773

PATIENT
  Age: 49 Year
  Sex: Female
  Weight: 70.29 kg

DRUGS (7)
  1. PROZAC [Suspect]
     Indication: PRODUCT USED FOR UNKNOWN INDICATION
  2. ZIPRASIDONE HYDROCHLORIDE (GEODON) [Suspect]
     Indication: BIPOLAR DISORDER
     Dosage: 60 MG (6 MG, 1 IN 1 D), ORAL
     Route: 048
  3. CELEXA [Suspect]
     Indication: DEPRESSION
  4. RISPERIDONE [Suspect]
     Indication: PRODUCT USED FOR UNKNOWN INDICATION
  5. AMBIEN [Concomitant]
  6. HYDROXYZINE HYDROCHLORIDE [Suspect]
     Indication: PRODUCT USED FOR UNKNOWN INDICATION
  7. DEPAKOTE [Concomitant]

REACTIONS (6)
  - DRUG INTERACTION [None]
  - SUICIDE ATTEMPT [None]
  - EMOTIONAL DISORDER [None]
  - SOMNOLENCE [None]
  - OVERDOSE [None]
  - FEELING ABNORMAL [None]
